FAERS Safety Report 5341185-2 (Version None)
Quarter: 2007Q2

REPORT INFORMATION
  Report Type: 
  Country: None (occurrence: None)
  Receive Date: 20070405
  Receipt Date: 20061122
  Transmission Date: 20071010
  Serious: No
  Sender: FDA-Public Use
  Company Number: US200611004636

PATIENT
  Age: 70 Year
  Sex: Female

DRUGS (8)
  1. CYMBALTA [Suspect]
     Indication: PAIN
     Dosage: 20 MG, DAILY (1/D), 20 MG,
     Dates: start: 20041008, end: 20041009
  2. CYMBALTA [Suspect]
     Indication: PAIN
     Dosage: 20 MG, DAILY (1/D), 20 MG,
     Dates: start: 20061121
  3. EVISTA [Suspect]
     Dates: start: 20020101
  4. PROTONIX [Concomitant]
  5. SODIUM CHLORIDE [Concomitant]
  6. AMBIEN [Concomitant]
  7. KLONOPIN [Concomitant]
  8. ATENOLOL [Concomitant]

REACTIONS (3)
  - BURNING SENSATION [None]
  - GASTROOESOPHAGEAL REFLUX DISEASE [None]
  - PARAESTHESIA [None]
